FAERS Safety Report 9999233 (Version 3)
Quarter: 2014Q2

REPORT INFORMATION
  Report Type: Spontaneous
  Country: US (occurrence: US)
  Receive Date: 20140312
  Receipt Date: 20140613
  Transmission Date: 20141212
  Serious: Yes (Other)
  Sender: FDA-Public Use
  Company Number: US-JNJFOC-20140302855

PATIENT
  Age: 85 Year
  Sex: Male
  Weight: 72.58 kg

DRUGS (6)
  1. XARELTO [Suspect]
     Indication: CEREBROVASCULAR ACCIDENT PROPHYLAXIS
     Dosage: WITH EVENING MEAL
     Route: 048
     Dates: start: 20131001
  2. XARELTO [Suspect]
     Indication: ATRIAL FIBRILLATION
     Dosage: WITH EVENING MEAL
     Route: 048
     Dates: start: 20131001
  3. TOPROL [Concomitant]
     Indication: CARDIAC DISORDER
     Route: 048
  4. PROSCAR [Concomitant]
     Indication: PROSTATOMEGALY
     Route: 048
  5. CARDURA [Concomitant]
     Indication: PROSTATOMEGALY
     Route: 048
  6. ZOCOR [Concomitant]
     Indication: CARDIAC DISORDER
     Route: 048

REACTIONS (6)
  - Atrial fibrillation [Unknown]
  - Cardiac disorder [Recovered/Resolved]
  - Rash macular [Not Recovered/Not Resolved]
  - Drug dose omission [Unknown]
  - Product container issue [Unknown]
  - Product size issue [Unknown]
